APPROVED DRUG PRODUCT: NALOXONE HYDROCHLORIDE
Active Ingredient: NALOXONE HYDROCHLORIDE
Strength: 0.02MG/ML
Dosage Form/Route: INJECTABLE;INJECTION
Application: A070252 | Product #001
Applicant: HOSPIRA INC
Approved: Jan 16, 1987 | RLD: No | RS: No | Type: DISCN